FAERS Safety Report 11907105 (Version 4)
Quarter: 2016Q1

REPORT INFORMATION
  Report Type: Spontaneous
  Country: US (occurrence: US)
  Receive Date: 20160111
  Receipt Date: 20160223
  Transmission Date: 20160526
  Serious: No
  Sender: FDA-Public Use
  Company Number: US-SHIRE-US201600010

PATIENT
  Age: 55 Year
  Sex: Male
  Weight: 96.6 kg

DRUGS (15)
  1. FOLIC ACID. [Concomitant]
     Active Substance: FOLIC ACID
     Indication: PRODUCT USED FOR UNKNOWN INDICATION
     Dosage: 1 MG, 1X/DAY:QD
     Route: 048
  2. CARDIA [Concomitant]
     Active Substance: AJMALINE
     Indication: HYPERTENSION
     Dosage: UNK
     Route: 065
  3. FLONASE                            /00908302/ [Concomitant]
     Active Substance: MOMETASONE FUROATE
     Indication: PRODUCT USED FOR UNKNOWN INDICATION
     Dosage: 2 DF, 1X/DAY:QD
     Route: 065
  4. GATTEX [Suspect]
     Active Substance: TEDUGLUTIDE\WATER
     Indication: SHORT-BOWEL SYNDROME
     Dosage: 0.48 ML, UNK
     Route: 058
     Dates: start: 20151201, end: 20160125
  5. OXYCODONE [Concomitant]
     Active Substance: OXYCODONE
     Indication: PAIN
     Dosage: 5 MG, AS REQ^D, EVERY 6 HOURS
     Route: 065
  6. OXYCODONE                          /00045603/ [Concomitant]
     Active Substance: OXYCODONE
     Indication: PAIN
     Dosage: UNK
     Route: 065
  7. VENLAFAXINE HCL [Concomitant]
     Active Substance: VENLAFAXINE HYDROCHLORIDE
     Indication: DEPRESSION
     Dosage: 37.5 MG, 2X/DAY:BID
     Route: 065
  8. WARFARIN                           /00014802/ [Concomitant]
     Active Substance: WARFARIN
     Indication: DEEP VEIN THROMBOSIS
     Dosage: UNK
     Route: 065
  9. VENLAFAXINE                        /01233802/ [Concomitant]
     Active Substance: VENLAFAXINE HYDROCHLORIDE
     Indication: DEPRESSION
     Dosage: UNK
     Route: 065
  10. CARTIA                             /00002701/ [Concomitant]
     Active Substance: ASPIRIN
     Indication: HYPERTENSION
     Dosage: 360 MG, 1X/DAY:QD
     Route: 065
  11. NORMAL SALINE [Concomitant]
     Active Substance: SODIUM CHLORIDE
     Indication: FLUID REPLACEMENT
     Dosage: 2000 ML MONDAY, WEDNESDAY, FRIDAY
     Route: 065
  12. OMEPRAZOLE. [Concomitant]
     Active Substance: OMEPRAZOLE
     Indication: PRODUCT USED FOR UNKNOWN INDICATION
     Dosage: 40 MG, 1X/DAY:QD
     Route: 048
  13. WARFARIN [Concomitant]
     Active Substance: WARFARIN
     Indication: DEEP VEIN THROMBOSIS
     Dosage: 2 MG, 1X/DAY:QD
     Route: 048
  14. NORMAL SALINE [Concomitant]
     Active Substance: SODIUM CHLORIDE
     Dosage: 1000 ML, TUESDAY, THURSDAY, SATURDAY, SUNDAY
     Route: 065
  15. GATTEX [Suspect]
     Active Substance: TEDUGLUTIDE\WATER
     Indication: CROHN^S DISEASE
     Dosage: 0.48 ML, EVERY 3 DAYS
     Route: 058
     Dates: start: 201601

REACTIONS (11)
  - Influenza like illness [Unknown]
  - Nausea [Recovering/Resolving]
  - Abdominal discomfort [Unknown]
  - Stoma site pain [Recovering/Resolving]
  - Headache [Recovering/Resolving]
  - Abdominal distension [Recovering/Resolving]
  - Inappropriate schedule of drug administration [Not Recovered/Not Resolved]
  - Abdominal pain [Recovered/Resolved]
  - Dyspepsia [Unknown]
  - Flatulence [Recovering/Resolving]
  - Abdominal pain upper [Unknown]

NARRATIVE: CASE EVENT DATE: 201601
